FAERS Safety Report 25146906 (Version 1)
Quarter: 2025Q2

REPORT INFORMATION
  Report Type: Spontaneous
  Country: US (occurrence: US)
  Receive Date: 20250401
  Receipt Date: 20250401
  Transmission Date: 20250716
  Serious: No
  Sender: BRISTOL MYERS SQUIBB
  Company Number: US-BRISTOL-MYERS SQUIBB COMPANY-2025-048384

PATIENT
  Age: 63 Year
  Sex: Male
  Weight: 95.8 kg

DRUGS (7)
  1. OPDIVO [Suspect]
     Active Substance: NIVOLUMAB
     Indication: Malignant melanoma
     Dates: start: 20250228
  2. YERVOY [Suspect]
     Active Substance: IPILIMUMAB
     Indication: Malignant melanoma
     Dates: start: 20250228
  3. YERVOY [Suspect]
     Active Substance: IPILIMUMAB
     Dates: start: 20250228
  4. TAMSULOSIN [Concomitant]
     Active Substance: TAMSULOSIN
     Indication: Product used for unknown indication
  5. VALSARTAN [Concomitant]
     Active Substance: VALSARTAN
     Indication: Product used for unknown indication
  6. XARELTO [Concomitant]
     Active Substance: RIVAROXABAN
     Indication: Product used for unknown indication
  7. CHLORTHALIDONE [Concomitant]
     Active Substance: CHLORTHALIDONE
     Indication: Product used for unknown indication

REACTIONS (1)
  - Laboratory test abnormal [Unknown]

NARRATIVE: CASE EVENT DATE: 20250301
